FAERS Safety Report 23441205 (Version 1)
Quarter: 2024Q1

REPORT INFORMATION
  Report Type: Spontaneous
  Country: US (occurrence: US)
  Receive Date: 20240125
  Receipt Date: 20240125
  Transmission Date: 20240409
  Serious: No
  Sender: FDA-Public Use
  Company Number: US-AMGEN-USASP2024014720

PATIENT
  Age: 40 Year
  Sex: Male

DRUGS (3)
  1. RIABNI [Suspect]
     Active Substance: RITUXIMAB-ARRX
     Indication: Autoimmune haemolytic anaemia
     Dosage: 700 MILLIGRAM, ( 2X 100 MG VIAL, 1X 500 MG VIAL)
     Route: 065
  2. RIABNI [Suspect]
     Active Substance: RITUXIMAB-ARRX
     Indication: Off label use
     Dosage: 700 MILLIGRAM, ( 2X 100 MG VIAL, 1X 500 MG VIAL)
     Route: 065
  3. RIABNI [Suspect]
     Active Substance: RITUXIMAB-ARRX
     Dosage: 700 MILLIGRAM, ( 2X 100 MG VIAL, 1X 500 MG VIAL)
     Route: 065

REACTIONS (2)
  - Malaise [Unknown]
  - Off label use [Unknown]

NARRATIVE: CASE EVENT DATE: 20231212
